FAERS Safety Report 19486820 (Version 1)
Quarter: 2021Q3

REPORT INFORMATION
  Report Type: Spontaneous
  Country: US (occurrence: US)
  Receive Date: 20210702
  Receipt Date: 20210702
  Transmission Date: 20211014
  Serious: Yes (Hospitalization, Other)
  Sender: FDA-Public Use
  Company Number: US-FRESENIUS KABI-FK202106558

PATIENT
  Age: 49 Year
  Sex: Female

DRUGS (13)
  1. INOTUZUMAB OZOGAMICIN [Suspect]
     Active Substance: INOTUZUMAB OZOGAMICIN
     Indication: ACUTE LYMPHOCYTIC LEUKAEMIA
     Dosage: 0.3 MG/M2, CYCLIC (REGIMEN A: OVER 1 HOUR ON D2 AND 8 OF CYCLES 1 AND 3 (APPROX), INTRAVENOUS
     Route: 042
     Dates: start: 20210117
  2. METHOTREXATE SODIUM. [Suspect]
     Active Substance: METHOTREXATE SODIUM
     Indication: PRODUCT USED FOR UNKNOWN INDICATION
     Dosage: 50 MG/M2, CYCLIC (REGIMEN B, OVER 2HRS ON D1), INTRAVENOUS
     Route: 042
  3. RITUXIMAB. [Suspect]
     Active Substance: RITUXIMAB
     Indication: PRODUCT USED FOR UNKNOWN INDICATION
     Dosage: 375 MG/M2, CYCLIC (REGIMEN A: D2 AND DAY 8 OF CYCLES 1 AND 3), INTRAVENOUS
     Route: 042
  4. VINCRISTINE SULFATE. [Suspect]
     Active Substance: VINCRISTINE SULFATE
     Indication: PRODUCT USED FOR UNKNOWN INDICATION
     Dosage: 2 MG, CYCLIC (REGIMEN A: D1 AND DAY 8 (APPROX), INTRAVENOUS
     Route: 042
  5. MESNA (MANUFACTURER UNKNOWN) [Suspect]
     Active Substance: MESNA
     Indication: PRODUCT USED FOR UNKNOWN INDICATION
     Dosage: 300 MG/M2, CYCLIC (REGIMEN A: DAILY OVER 24 HOURS FOR 3 DAYS ON DAYS 1?3), INTRAVENOUS
     Route: 042
  6. METHOTREXATE SODIUM. [Suspect]
     Active Substance: METHOTREXATE SODIUM
     Dosage: 200 MG/M2, CYCLIC (REGIMEN B, CONTINUOUS INFUSION OVER 22 HOURS ON D1), INTRAVENOUS
     Route: 042
  7. CYCLOPHOSPHAMIDE. [Suspect]
     Active Substance: CYCLOPHOSPHAMIDE
     Indication: PRODUCT USED FOR UNKNOWN INDICATION
     Dosage: 150 MG/M2, CYCLIC (REGIMEN A: OVER 3 HRS 2XD ON D 1?3), INTRAVENOUS
     Route: 042
  8. DEXAMETHASONE. [Suspect]
     Active Substance: DEXAMETHASONE
     Indication: PRODUCT USED FOR UNKNOWN INDICATION
     Dosage: 20 MG, CYCLIC (REGIMEN A: DAILY FOR 4 DAYS ON DAYS 1?4AND DAYS11?14 (APPROXIMATE)), INTRAVENOUS
     Route: 042
  9. INOTUZUMAB OZOGAMICIN [Suspect]
     Active Substance: INOTUZUMAB OZOGAMICIN
     Dosage: 0.3 MG/M2, CYCLIC ((REGIMEN B, ON D 2 AND 8 OF CYCLES 2 AND 4 (APPROX)), INTRAVENOUS
     Route: 042
  10. PEGFILGRASTIM [Suspect]
     Active Substance: PEGFILGRASTIM
     Indication: PRODUCT USED FOR UNKNOWN INDICATION
     Dosage: 6 MG, CYCLIC (REGIMEN A OR FILGRASTIM 5?10 MCG/KG DAILY ON D4 UNTIL RECOVERY GRANULOCYTE COUNT
     Route: 058
  11. CYTARABINE. [Suspect]
     Active Substance: CYTARABINE
     Indication: PRODUCT USED FOR UNKNOWN INDICATION
     Dosage: 500 MG/M2, CYCLIC (REGIMEN B, OVER 3 HOURS TWICE A DAY X 4 DOSES ON D 2 AND 3), INTRAVENOUS
     Route: 042
  12. RITUXIMAB. [Suspect]
     Active Substance: RITUXIMAB
     Dosage: 375 MG/M2, CYCLIC (REGIMEN B, ON D2 AND 8 OF CYCLES 2 AND 4), INTRAVENOUS
     Route: 042
  13. PEGFILGRASTIM [Suspect]
     Active Substance: PEGFILGRASTIM
     Dosage: 6 MG, CYCLIC (REGIMEN B OR FILGRASTIM 5?10MCG/KG DAILY ON D4 UNTIL RECOVERY GRANULOCYTE COUNT)
     Route: 058

REACTIONS (1)
  - Ascites [Recovered/Resolved]

NARRATIVE: CASE EVENT DATE: 20210518
